FAERS Safety Report 8974131 (Version 1)
Quarter: 2012Q4

REPORT INFORMATION
  Report Type: Spontaneous
  Country: RO (occurrence: None)
  Receive Date: 20121211
  Receipt Date: 20121211
  Transmission Date: 20130627
  Serious: Yes (Other)
  Sender: FDA-Public Use
  Company Number: ENTC2012-0544

PATIENT
  Age: 72 Year
  Sex: Male

DRUGS (2)
  1. STALEVO (LEVODOPA, CARBIDOPA, ENTACAPONE) [Suspect]
     Dates: start: 20120924
  2. NICOMOL [Concomitant]

REACTIONS (1)
  - Intraocular pressure increased [None]
